FAERS Safety Report 9132102 (Version 1)
Quarter: 2013Q1

REPORT INFORMATION
  Report Type: Spontaneous
  Country: FR (occurrence: FR)
  Receive Date: 20130208
  Receipt Date: 20130208
  Transmission Date: 20140127
  Serious: Yes (Hospitalization, Other)
  Sender: FDA-Public Use
  Company Number: FR-ELI_LILLY_AND_COMPANY-FR201301010259

PATIENT
  Age: 47 Year
  Sex: Male

DRUGS (7)
  1. BYETTA [Suspect]
     Indication: TYPE 2 DIABETES MELLITUS
     Dosage: 10 UG, BID
     Route: 058
  2. TAHOR [Concomitant]
     Dosage: UNK, UNKNOWN
  3. METFORMINE [Concomitant]
     Dosage: UNK, UNKNOWN
  4. DIAMICRON [Concomitant]
     Dosage: UNK, UNKNOWN
  5. INEXIUM [Concomitant]
     Dosage: UNK, UNKNOWN
  6. PERIDYS [Concomitant]
     Dosage: UNK, UNKNOWN
  7. OLMETEC [Concomitant]
     Dosage: UNK, UNKNOWN

REACTIONS (3)
  - Hepatitis B [Unknown]
  - Pancreatitis acute [Recovered/Resolved]
  - Hepatic steatosis [Unknown]
